FAERS Safety Report 8951947 (Version 2)
Quarter: 2013Q1

REPORT INFORMATION
  Report Type: Spontaneous
  Country: US (occurrence: US)
  Receive Date: 20121204
  Receipt Date: 20130204
  Transmission Date: 20140127
  Serious: No
  Sender: FDA-Public Use
  Company Number: US-AMGEN-USASP2012070037

PATIENT
  Age: 46 Year
  Sex: Female

DRUGS (2)
  1. ENBREL [Suspect]
     Indication: PSORIASIS
     Dosage: 50 MG, QWK
     Route: 058
     Dates: start: 201205, end: 201211
  2. ELMIRON [Concomitant]
     Indication: CYSTITIS INTERSTITIAL
     Dosage: UNK
     Route: 048

REACTIONS (3)
  - Cystitis interstitial [Not Recovered/Not Resolved]
  - Liver injury [Not Recovered/Not Resolved]
  - Hepatic enzyme increased [Recovering/Resolving]
